FAERS Safety Report 24428929 (Version 1)
Quarter: 2024Q4

REPORT INFORMATION
  Report Type: Report from Study
  Country: GR (occurrence: GR)
  Receive Date: 20241011
  Receipt Date: 20241011
  Transmission Date: 20250115
  Serious: Yes (Other)
  Sender: ABBVIE
  Company Number: GR-ABBVIE-5960571

PATIENT

DRUGS (11)
  1. CEFTAROLINE FOSAMIL [Suspect]
     Active Substance: CEFTAROLINE FOSAMIL
     Indication: Klebsiella infection
     Route: 065
  2. COLISTIN [Suspect]
     Active Substance: COLISTIN
     Indication: Klebsiella infection
     Route: 065
  3. FOSFOMYCIN [Suspect]
     Active Substance: FOSFOMYCIN
     Indication: Klebsiella infection
     Route: 065
  4. LINEZOLID [Suspect]
     Active Substance: LINEZOLID
     Indication: Klebsiella infection
     Route: 065
  5. CEFTAZIDIME PENTAHYDRATE [Suspect]
     Active Substance: CEFTAZIDIME
     Indication: Klebsiella infection
     Route: 065
  6. CEFTOLOZANE SULFATE [Suspect]
     Active Substance: CEFTOLOZANE SULFATE
     Indication: Klebsiella infection
     Route: 065
  7. DAPTOMYCIN [Suspect]
     Active Substance: DAPTOMYCIN
     Indication: Klebsiella infection
     Route: 065
  8. TIGECYCLINE [Suspect]
     Active Substance: TIGECYCLINE
     Indication: Klebsiella infection
     Route: 065
  9. CEFTAZIDIME [Suspect]
     Active Substance: CEFTAZIDIME
     Indication: Klebsiella infection
     Route: 065
  10. TAZOBACTAM SODIUM [Suspect]
     Active Substance: TAZOBACTAM SODIUM
     Indication: Klebsiella bacteraemia
     Route: 065
  11. AVIBACTAM SODIUM [Suspect]
     Active Substance: AVIBACTAM SODIUM
     Indication: Klebsiella bacteraemia
     Route: 065

REACTIONS (1)
  - Klebsiella bacteraemia [Unknown]
